FAERS Safety Report 8799943 (Version 1)
Quarter: 2012Q4

REPORT INFORMATION
  Report Type: Spontaneous
  Country: US (occurrence: None)
  Receive Date: 20120918
  Receipt Date: 20120918
  Transmission Date: 20130627
  Serious: Yes (Hospitalization)
  Sender: FDA-Public Use
  Company Number: None

PATIENT

DRUGS (2)
  1. MEFENAMIC ACID [Suspect]
     Indication: HEAVY PERIODS
     Dosage: 3 daily
  2. MEFENAMIC ACID [Suspect]
     Indication: PAINFUL PERIODS
     Dosage: 3 daily

REACTIONS (1)
  - Migraine [None]
